FAERS Safety Report 6370066-0 (Version None)
Quarter: 2009Q3

REPORT INFORMATION
  Report Type: 
  Country: None (occurrence: None)
  Receive Date: 20090923
  Receipt Date: 20080326
  Transmission Date: 20100115
  Serious: Yes (Other)
  Sender: FDA-Public Use
  Company Number: US-ASTRAZENECA-2006UW21886

PATIENT
  Age: 19405 Day
  Sex: Female
  Weight: 112 kg

DRUGS (3)
  1. SEROQUEL [Suspect]
     Indication: DEPRESSION
     Dosage: 50-150 MG
     Route: 048
     Dates: start: 19990101, end: 20030101
  2. GLUCOTROL XL [Concomitant]
     Dates: start: 20080223
  3. ZANTAC [Concomitant]
     Dates: start: 20080223

REACTIONS (4)
  - DIABETES MELLITUS [None]
  - DIABETES MELLITUS INADEQUATE CONTROL [None]
  - PANCREATITIS [None]
  - TYPE 2 DIABETES MELLITUS [None]
